FAERS Safety Report 5527559-5 (Version None)
Quarter: 2007Q4

REPORT INFORMATION
  Report Type: 
  Country: None (occurrence: None)
  Receive Date: 20071128
  Receipt Date: 20071116
  Transmission Date: 20080405
  Serious: Yes (Disabling, Other)
  Sender: FDA-Public Use
  Company Number: US-ELI_LILLY_AND_COMPANY-US200711004016

PATIENT
  Sex: Female

DRUGS (1)
  1. FORTEO [Suspect]
     Indication: OSTEOPOROSIS
     Dates: start: 20060818

REACTIONS (5)
  - ABASIA [None]
  - FALL [None]
  - GAIT DISTURBANCE [None]
  - PARKINSON'S DISEASE [None]
  - TREMOR [None]
